FAERS Safety Report 15855461 (Version 2)
Quarter: 2019Q1

REPORT INFORMATION
  Report Type: Report from Study
  Country: CA (occurrence: CA)
  Receive Date: 20190122
  Receipt Date: 20190219
  Transmission Date: 20190417
  Serious: Yes (Hospitalization, Disabling)
  Sender: FDA-Public Use
  Company Number: PHHY2018CA158061

PATIENT
  Age: 61 Year
  Sex: Female

DRUGS (3)
  1. AFINITOR [Suspect]
     Active Substance: EVEROLIMUS
     Indication: BREAST CANCER
     Dosage: 10 MG, QD
     Route: 048
     Dates: start: 20181109, end: 20190204
  2. AROMASIN [Concomitant]
     Active Substance: EXEMESTANE
     Indication: PRODUCT USED FOR UNKNOWN INDICATION
     Route: 065
  3. UV-A LIGHT [Concomitant]
     Indication: PSORIASIS
     Route: 065

REACTIONS (15)
  - Blood glucose abnormal [Unknown]
  - Diarrhoea [Unknown]
  - Lymphoedema [Unknown]
  - Dry eye [Unknown]
  - Cytogenetic abnormality [Unknown]
  - Drug ineffective [Unknown]
  - Asthenia [Unknown]
  - Cellulitis [Unknown]
  - Rosacea [Recovering/Resolving]
  - Dysgeusia [Unknown]
  - Glossodynia [Unknown]
  - Dry skin [Unknown]
  - Acne [Recovering/Resolving]
  - Oral pain [Recovered/Resolved]
  - Malaise [Unknown]

NARRATIVE: CASE EVENT DATE: 201811
